FAERS Safety Report 13592187 (Version 1)
Quarter: 2017Q2

REPORT INFORMATION
  Report Type: Spontaneous
  Country: IT (occurrence: IT)
  Receive Date: 20170530
  Receipt Date: 20170530
  Transmission Date: 20170830
  Serious: Yes (Hospitalization)
  Sender: FDA-Public Use
  Company Number: IT-TEVA-710704ACC

PATIENT
  Age: 64 Year
  Sex: Male
  Weight: 94 kg

DRUGS (14)
  1. BASSADO - 100 MG COMPRESSE - PFIZER ITALIA S.R.L. [Suspect]
     Active Substance: DOXYCYCLINE HYCLATE
     Indication: STAPHYLOCOCCAL INFECTION
     Dosage: 100 MILLIGRAM DAILY;
     Route: 048
     Dates: start: 20161001, end: 20161010
  2. DALACIN C - PFIZER ITALIA S.R.L. [Suspect]
     Active Substance: CLINDAMYCIN HYDROCHLORIDE
     Indication: STAPHYLOCOCCAL INFECTION
     Dosage: 900 MILLIGRAM DAILY;
     Dates: start: 20160919, end: 20160925
  3. ATORVASTATIN? [Concomitant]
     Indication: HYPERCHOLESTEROLAEMIA
  4. VALCYTE [Suspect]
     Active Substance: VALGANCICLOVIR HYDROCHLORIDE
     Indication: CYTOMEGALOVIRUS INFECTION
     Dosage: 1800 MILLIGRAM DAILY;
     Route: 048
     Dates: start: 20161006, end: 20161018
  5. METILPREDNISOLONE? [Concomitant]
     Indication: LIVER TRANSPLANT
  6. TRAMADOL. [Concomitant]
     Active Substance: TRAMADOL
     Indication: PAIN
     Route: 048
     Dates: start: 20160821, end: 20161016
  7. TACNI - 1 MG CAPSULE RIGIDE - TEVA ITALIA S.R.L. [Suspect]
     Active Substance: TACROLIMUS
     Indication: LIVER TRANSPLANT
     Dosage: 6 MILLIGRAM DAILY;
     Route: 048
     Dates: start: 20160821
  8. SILODOSIN [Concomitant]
     Active Substance: SILODOSIN
     Indication: BENIGN PROSTATIC HYPERPLASIA
     Route: 048
  9. ACICLOVIR DOROM TEVA ITALIA S.R.L. [Suspect]
     Active Substance: ACYCLOVIR
     Indication: ANTIVIRAL PROPHYLAXIS
     Dosage: 400 MILLIGRAM DAILY;
     Route: 048
     Dates: start: 20160904, end: 20161016
  10. AMIODARONE RATIOPHARM ITALIA - 200 MG COMPRESSE - RATIOPHARM ITALIA S. [Suspect]
     Active Substance: AMIODARONE
     Indication: ATRIAL FIBRILLATION
     Dosage: 200 MILLIGRAM DAILY;
     Route: 048
     Dates: start: 20160901, end: 20161027
  11. PANTOPRAZOLO SANDOZ - 40 MG COMPRESSE GASTRORES ISTENTI - SANDOZ S.P.A [Suspect]
     Active Substance: PANTOPRAZOLE SODIUM
     Indication: PROPHYLAXIS AGAINST GASTROINTESTINAL ULCER
     Dosage: 40 MILLIGRAM DAILY;
     Route: 048
     Dates: start: 20160821, end: 20161018
  12. NADROPARIN CALCIUM? [Concomitant]
     Indication: THROMBOSIS PROPHYLAXIS
     Route: 058
     Dates: start: 20160821, end: 20160921
  13. CARDIOASPIRIN - 100 MG COMPRESSE GASTRORESISTENTI - BAYER S.P.A. [Suspect]
     Active Substance: ASPIRIN
     Indication: MYOCARDIAL ISCHAEMIA
     Dosage: 100 MILLIGRAM DAILY;
     Route: 048
     Dates: start: 20160826, end: 20161018
  14. DEURSIL [Suspect]
     Active Substance: URSODIOL
     Indication: BILIARY ANASTOMOSIS
     Dosage: 600 MILLIGRAM DAILY;
     Route: 048
     Dates: start: 20160826, end: 20161018

REACTIONS (6)
  - Stevens-Johnson syndrome [Recovering/Resolving]
  - Generalised oedema [Recovering/Resolving]
  - Weight increased [Recovering/Resolving]
  - Anaemia [Recovering/Resolving]
  - Hyponatraemia [Recovering/Resolving]
  - Product use in unapproved indication [Recovering/Resolving]

NARRATIVE: CASE EVENT DATE: 20161016
